FAERS Safety Report 7766147-7 (Version None)
Quarter: 2011Q3

REPORT INFORMATION
  Report Type: 
  Country: None (occurrence: None)
  Receive Date: 20110921
  Receipt Date: 20110913
  Transmission Date: 20111222
  Serious: Yes (Hospitalization, Other)
  Sender: FDA-Public Use
  Company Number: US-MERCK-1012USA03780

PATIENT
  Age: 64 Year
  Sex: Female
  Weight: 55 kg

DRUGS (8)
  1. VITAMIN E [Concomitant]
     Route: 065
     Dates: start: 19750101
  2. CALCIUM (UNSPECIFIED) [Concomitant]
     Route: 065
     Dates: start: 19750101
  3. FOSAMAX [Suspect]
     Indication: SENILE OSTEOPOROSIS
     Route: 048
     Dates: start: 20010114, end: 20060702
  4. BONIVA [Suspect]
     Indication: OSTEOPOROSIS
     Route: 048
     Dates: start: 20060901, end: 20080830
  5. FOSAMAX [Suspect]
     Indication: OSTEOPENIA
     Route: 048
     Dates: start: 20010114, end: 20060702
  6. CHOLECALCIFEROL [Concomitant]
     Route: 065
     Dates: start: 19750101
  7. ESTRADIOL [Concomitant]
     Route: 065
  8. SODIUM (UNSPECIFIED) [Concomitant]
     Route: 065
     Dates: start: 19750101

REACTIONS (46)
  - FALL [None]
  - HAEMATURIA [None]
  - ANXIETY [None]
  - PERINEURIAL CYST [None]
  - ARTHRALGIA [None]
  - UPPER RESPIRATORY TRACT INFECTION [None]
  - DENTAL CARIES [None]
  - TENDONITIS [None]
  - GINGIVAL BLEEDING [None]
  - BONE LOSS [None]
  - BREAST CYST [None]
  - INTERMITTENT CLAUDICATION [None]
  - GINGIVAL RECESSION [None]
  - HYPONATRAEMIA [None]
  - HYPOKALAEMIA [None]
  - BONE DENSITY DECREASED [None]
  - PELVIC PAIN [None]
  - IMPAIRED HEALING [None]
  - STRESS FRACTURE [None]
  - OSTEOARTHRITIS [None]
  - CALCIUM DEFICIENCY [None]
  - CYSTITIS [None]
  - ABDOMINAL PAIN [None]
  - ADNEXA UTERI CYST [None]
  - OVARIAN CYST [None]
  - HYPERLIPIDAEMIA [None]
  - FOOT FRACTURE [None]
  - OSTEOPOROSIS [None]
  - DIARRHOEA [None]
  - ANAEMIA POSTOPERATIVE [None]
  - VISION BLURRED [None]
  - ADVERSE DRUG REACTION [None]
  - DYSPEPSIA [None]
  - NAUSEA [None]
  - MYALGIA [None]
  - ESSENTIAL HYPERTENSION [None]
  - TOOTH FRACTURE [None]
  - OSTEOMALACIA [None]
  - VITAMIN D DEFICIENCY [None]
  - URINE CALCIUM INCREASED [None]
  - GASTROINTESTINAL DISORDER [None]
  - FEMUR FRACTURE [None]
  - POLYMYALGIA RHEUMATICA [None]
  - NEUROPATHY PERIPHERAL [None]
  - IRRITABLE BOWEL SYNDROME [None]
  - GINGIVITIS [None]
